FAERS Safety Report 9155394 (Version 2)
Quarter: 2013Q2

REPORT INFORMATION
  Report Type: Spontaneous
  Country: JP (occurrence: JP)
  Receive Date: 20130311
  Receipt Date: 20130415
  Transmission Date: 20140414
  Serious: Yes (Hospitalization, Other)
  Sender: FDA-Public Use
  Company Number: JP-WATSON-2013-03716

PATIENT
  Age: 79 Year
  Sex: Male
  Weight: 66.5 kg

DRUGS (4)
  1. CISPLATIN [Suspect]
     Indication: NASAL SINUS CANCER
     Dosage: 130 MG, SINGLE
     Route: 065
  2. ETOPOSIDE [Concomitant]
     Indication: NASAL SINUS CANCER
     Dosage: 170 MG, DAILY
     Route: 065
  3. DILTIAZEM HCL [Concomitant]
     Indication: PRODUCT USED FOR UNKNOWN INDICATION
     Dosage: 90 MG, TID
     Route: 048
  4. FAMOTIDINE [Concomitant]
     Indication: PRODUCT USED FOR UNKNOWN INDICATION
     Dosage: 20 MG, DAILY
     Route: 048

REACTIONS (1)
  - Renal salt-wasting syndrome [Recovered/Resolved]
